FAERS Safety Report 12683855 (Version 2)
Quarter: 2019Q2

REPORT INFORMATION
  Report Type: Spontaneous
  Country: FR (occurrence: FR)
  Receive Date: 20160825
  Receipt Date: 20190513
  Transmission Date: 20190711
  Serious: Yes (Life-Threatening)
  Sender: FDA-Public Use
  Company Number: FR-PFIZER INC-2016391528

PATIENT
  Age: 50 Year
  Sex: Male
  Weight: 92 kg

DRUGS (16)
  1. IMOVANE [Suspect]
     Active Substance: ZOPICLONE
     Indication: INSOMNIA
     Dosage: UNK
     Route: 048
     Dates: start: 20160706, end: 20160717
  2. SERESTA [Suspect]
     Active Substance: OXAZEPAM
     Indication: ANXIETY
     Dosage: UNK
     Route: 048
     Dates: start: 20160708, end: 20160717
  3. XANAX [Concomitant]
     Active Substance: ALPRAZOLAM
     Indication: ANXIOLYTIC THERAPY
     Dosage: UNK
     Dates: start: 20160705, end: 20160708
  4. TOPALGIC [Concomitant]
     Dosage: UNK
     Dates: start: 20160713
  5. DALACINE [Concomitant]
     Active Substance: CLINDAMYCIN
     Dosage: UNK
     Dates: start: 20160713, end: 20160717
  6. TAZOCILLINE [Concomitant]
     Active Substance: PIPERACILLIN SODIUM\TAZOBACTAM SODIUM
     Dosage: UNK
     Dates: start: 20160714
  7. OXYCODONE [Concomitant]
     Active Substance: OXYCODONE
     Dosage: UNK
     Dates: start: 20160714
  8. MALOCIDE (PYRIMETHAMINE) [Suspect]
     Active Substance: PYRIMETHAMINE
     Indication: CEREBRAL TOXOPLASMOSIS
     Dosage: 100 MG (50 MG, 2 TABLETS), DAILY
     Route: 048
     Dates: start: 20160705
  9. LEDERFOLINE [Suspect]
     Active Substance: LEUCOVORIN CALCIUM
     Indication: VITAMIN SUPPLEMENTATION
     Dosage: 25 MG, 1X/DAY
     Route: 048
     Dates: start: 20160705, end: 20160717
  10. ADIAZINE [Suspect]
     Active Substance: SULFADIAZINE
     Indication: CEREBRAL TOXOPLASMOSIS
     Dosage: 6 G, 1X/DAY
     Route: 048
     Dates: start: 20160705, end: 20160713
  11. MALOCIDE (PYRIMETHAMINE) [Suspect]
     Active Substance: PYRIMETHAMINE
     Dosage: 75 MG, DAILY
     Route: 048
     Dates: end: 20160715
  12. PENTASA [Concomitant]
     Active Substance: MESALAMINE
     Dosage: 1 G, 2X/DAY
     Dates: end: 20160701
  13. PARACETAMOL [Concomitant]
     Active Substance: ACETAMINOPHEN
     Indication: PAIN
     Dosage: 1 G, 4X/DAY, IF PAIN
  14. PARACETAMOL [Concomitant]
     Active Substance: ACETAMINOPHEN
     Dosage: UNK
     Dates: start: 20160713
  15. ACUPAN [Concomitant]
     Active Substance: NEFOPAM HYDROCHLORIDE
     Indication: PAIN
     Dosage: 20 MG, 6X/DAY, AS NEED IF PAIN
  16. PRIMPERAN [Concomitant]
     Active Substance: METOCLOPRAMIDE HYDROCHLORIDE
     Dosage: UNK
     Dates: start: 20160712

REACTIONS (1)
  - Drug reaction with eosinophilia and systemic symptoms [Recovered/Resolved]

NARRATIVE: CASE EVENT DATE: 20160714
